FAERS Safety Report 20388420 (Version 1)
Quarter: 2022Q1

REPORT INFORMATION
  Report Type: Spontaneous
  Country: US (occurrence: US)
  Receive Date: 20220128
  Receipt Date: 20220128
  Transmission Date: 20220423
  Serious: No
  Sender: FDA-Public Use
  Company Number: US-ENDO PHARMACEUTICALS INC-2021-012714

PATIENT
  Sex: Female

DRUGS (3)
  1. QWO [Suspect]
     Active Substance: COLLAGENASE CLOSTRIDIUM HISTOLYTICUM-AAES
     Indication: Cellulite
     Dosage: UNK UNKNOWN, UNKNOWN (TREATMENT ONE) (12 INJECTIONS/THIGH)
     Route: 065
     Dates: start: 20210429
  2. QWO [Suspect]
     Active Substance: COLLAGENASE CLOSTRIDIUM HISTOLYTICUM-AAES
     Dosage: UNK UNKNOWN, UNKNOWN (TREATMENT TWO) (12 INJECTIONS/THIGH)
     Route: 065
     Dates: start: 20210520
  3. QWO [Suspect]
     Active Substance: COLLAGENASE CLOSTRIDIUM HISTOLYTICUM-AAES
     Dosage: UNK UNKNOWN, UNKNOWN (TREATMENT THREE) (12 INJECTIONS/THIGH)
     Route: 065
     Dates: start: 20210610

REACTIONS (4)
  - Swelling [Recovered/Resolved]
  - Contusion [Recovered/Resolved]
  - Drug ineffective for unapproved indication [Unknown]
  - Off label use [Unknown]

NARRATIVE: CASE EVENT DATE: 20210101
